FAERS Safety Report 5500902-9 (Version None)
Quarter: 2007Q4

REPORT INFORMATION
  Report Type: 
  Country: None (occurrence: None)
  Receive Date: 20071029
  Receipt Date: 20071022
  Transmission Date: 20080405
  Serious: Yes (Other)
  Sender: FDA-Public Use
  Company Number: JP-SANOFI-SYNTHELABO-F01200701343

PATIENT
  Sex: Female

DRUGS (9)
  1. SULPERAZON [Concomitant]
     Dates: start: 20070903, end: 20070910
  2. JUZENTAIHOTO [Concomitant]
     Dates: start: 20070903
  3. LAC-B [Concomitant]
     Dates: start: 20070829
  4. LENDORMIN [Concomitant]
     Dates: start: 20070815
  5. FAMOTIDINE [Concomitant]
     Dates: start: 20070724
  6. FLUOROURACIL [Suspect]
     Route: 042
     Dates: start: 20070820, end: 20070912
  7. OXALIPLATIN [Suspect]
     Indication: COLON CANCER METASTATIC
     Route: 042
     Dates: start: 20070820, end: 20070910
  8. CALCIUM LEVOFOLINATE [Suspect]
     Route: 042
     Dates: start: 20070820, end: 20070911
  9. BEVACIZUMAB [Suspect]
     Route: 042
     Dates: start: 20070820, end: 20070910

REACTIONS (1)
  - ENTEROCUTANEOUS FISTULA [None]
